FAERS Safety Report 5683008-8 (Version None)
Quarter: 2008Q1

REPORT INFORMATION
  Report Type: 
  Country: None (occurrence: None)
  Receive Date: 20080327
  Receipt Date: 20080318
  Transmission Date: 20080703
  Serious: Yes (Death)
  Sender: FDA-Public Use
  Company Number: US-PURDUE-USA_2008_0032055

PATIENT
  Age: 24 Year
  Sex: Female

DRUGS (1)
  1. OXYCONTIN [Suspect]
     Indication: PAIN
     Dosage: 20 MG, SEE TEXT
     Route: 048

REACTIONS (1)
  - DEATH [None]
